FAERS Safety Report 4897338-0 (Version None)
Quarter: 2005Q4

REPORT INFORMATION
  Report Type: 
  Country: None (occurrence: None)
  Receive Date: 20051223
  Receipt Date: 20051017
  Transmission Date: 20060501
  Serious: No
  Sender: FDA-Public Use
  Company Number: 05P-163-0313958-00

PATIENT
  Age: 61 Year
  Sex: Female
  Weight: 89.3586 kg

DRUGS (8)
  1. HUMIRA [Suspect]
     Indication: RHEUMATOID ARTHRITIS
     Dosage: 40 MG, 1 IN 2 WK, SUBCUTANEOUS
     Route: 058
     Dates: start: 20050601, end: 20051014
  2. COMBIVENT [Concomitant]
  3. OXYGEN [Concomitant]
  4. PREDNISONE [Concomitant]
  5. FUROSEMIDE [Concomitant]
  6. DILTIAZEM HCL [Concomitant]
  7. WARFARIN [Concomitant]
  8. POTASSIUM CHLORIDE [Concomitant]

REACTIONS (1)
  - UPPER RESPIRATORY TRACT INFECTION [None]
